FAERS Safety Report 8414137-3 (Version None)
Quarter: 2012Q2

REPORT INFORMATION
  Report Type: 
  Country: None (occurrence: None)
  Receive Date: 20120605
  Receipt Date: 20120529
  Transmission Date: 20120825
  Serious: Yes (Hospitalization)
  Sender: FDA-Public Use
  Company Number: US-TEVA-340739USA

PATIENT
  Sex: Male

DRUGS (4)
  1. DEXAMETHASONE [Concomitant]
  2. PEGFILGRASTIM [Concomitant]
  3. ONDANSETRON [Concomitant]
  4. TREANDA [Suspect]
     Indication: CHRONIC LYMPHOCYTIC LEUKAEMIA
     Dosage: RECEIVED ONE CYCLE
     Route: 042
     Dates: start: 20120315

REACTIONS (1)
  - MYOCARDIAL INFARCTION [None]
